FAERS Safety Report 18889528 (Version 1)
Quarter: 2021Q1

REPORT INFORMATION
  Report Type: Spontaneous
  Country: AU (occurrence: AU)
  Receive Date: 20210213
  Receipt Date: 20210213
  Transmission Date: 20210420
  Serious: Yes (Other)
  Sender: FDA-Public Use
  Company Number: AU-AMGEN-AUSSP2021019631

PATIENT
  Age: 75 Year
  Sex: Female

DRUGS (2)
  1. PROLIA [Suspect]
     Active Substance: DENOSUMAB
     Indication: PROPHYLAXIS
     Dosage: 60 MILLIGRAM, Q6MO
     Route: 058
  2. ARIMIDEX [Concomitant]
     Active Substance: ANASTROZOLE
     Indication: BREAST CANCER

REACTIONS (7)
  - Dental implantation [Unknown]
  - Product use in unapproved indication [Unknown]
  - Fall [Unknown]
  - Post procedural infection [Unknown]
  - Impaired healing [Unknown]
  - Tooth fracture [Unknown]
  - Bone loss [Unknown]
